FAERS Safety Report 13393934 (Version 1)
Quarter: 2017Q1

REPORT INFORMATION
  Report Type: Spontaneous
  Country: US (occurrence: US)
  Receive Date: 20170331
  Receipt Date: 20170331
  Transmission Date: 20170429
  Serious: Yes (Other)
  Sender: FDA-Public Use
  Company Number: US-JAZZ-2017-US-003979

PATIENT
  Sex: Female

DRUGS (4)
  1. PRIALT [Suspect]
     Active Substance: ZICONOTIDE ACETATE
     Indication: PAIN
     Dosage: 0.334 ?G, QH
     Route: 037
  2. CLONIDINE. [Suspect]
     Active Substance: CLONIDINE
     Indication: PAIN
     Dosage: UNK ?G, QH
     Route: 037
  3. PRIALT [Suspect]
     Active Substance: ZICONOTIDE ACETATE
     Indication: POST LAMINECTOMY SYNDROME
  4. CLONIDINE. [Suspect]
     Active Substance: CLONIDINE
     Indication: POST LAMINECTOMY SYNDROME
     Dosage: 1.762 ?G, QH
     Route: 037

REACTIONS (2)
  - Spinal cord neoplasm [Unknown]
  - Salivary gland neoplasm [Unknown]

NARRATIVE: CASE EVENT DATE: 2016
